FAERS Safety Report 15025067 (Version 1)
Quarter: 2018Q2

REPORT INFORMATION
  Report Type: Spontaneous
  Country: FR (occurrence: FR)
  Receive Date: 20180618
  Receipt Date: 20180618
  Transmission Date: 20180711
  Serious: Yes (Death, Other)
  Sender: FDA-Public Use
  Company Number: FR-GILEAD-2018-0337307

PATIENT
  Age: 59 Year
  Sex: Female

DRUGS (6)
  1. TADALAFIL [Suspect]
     Active Substance: TADALAFIL
     Dosage: UNK
     Route: 048
  2. ILOPROST TROMETAMOL [Suspect]
     Active Substance: ILOPROST TROMETHAMINE
     Indication: PULMONARY ARTERIAL HYPERTENSION
     Dosage: UNK
     Route: 055
  3. EPOPROSTENOL. [Suspect]
     Active Substance: EPOPROSTENOL
     Indication: PULMONARY ARTERIAL HYPERTENSION
     Dosage: UNK
     Route: 065
  4. AMBRISENTAN [Suspect]
     Active Substance: AMBRISENTAN
     Indication: PULMONARY ARTERIAL HYPERTENSION
     Dosage: UNK
     Route: 048
  5. TADALAFIL [Suspect]
     Active Substance: TADALAFIL
     Indication: PULMONARY ARTERIAL HYPERTENSION
     Dosage: UNK
     Route: 048
  6. EPOPROSTENOL. [Suspect]
     Active Substance: EPOPROSTENOL
     Dosage: 35 NG/KG/MIN
     Route: 065

REACTIONS (8)
  - Impaired quality of life [Unknown]
  - Drug ineffective [Unknown]
  - Headache [Unknown]
  - Pain in jaw [Unknown]
  - Right ventricular failure [Fatal]
  - Acute respiratory failure [Fatal]
  - Dyspnoea [Unknown]
  - Diarrhoea [Unknown]
